FAERS Safety Report 17685280 (Version 1)
Quarter: 2020Q2

REPORT INFORMATION
  Report Type: Report from Study
  Country: GB (occurrence: GB)
  Receive Date: 20200420
  Receipt Date: 20200420
  Transmission Date: 20200714
  Serious: Yes (Other)
  Sender: FDA-Public Use
  Company Number: GB-SAMSUNG BIOEPIS-SB-2020-13323

PATIENT
  Age: 63 Year
  Sex: Female

DRUGS (1)
  1. IMRALDI [Suspect]
     Active Substance: ADALIMUMAB
     Indication: RHEUMATOID ARTHRITIS
     Route: 058

REACTIONS (6)
  - Nasopharyngitis [Unknown]
  - Depression [Unknown]
  - Ear infection [Unknown]
  - Salmonellosis [Unknown]
  - Malaise [Unknown]
  - Ear haemorrhage [Unknown]
